FAERS Safety Report 8966914 (Version 4)
Quarter: 2013Q1

REPORT INFORMATION
  Report Type: Spontaneous
  Country: JP (occurrence: JP)
  Receive Date: 20121217
  Receipt Date: 20130116
  Transmission Date: 20140127
  Serious: Yes (Disabling, Other)
  Sender: FDA-Public Use
  Company Number: JP-PFIZER INC-2012267469

PATIENT
  Age: 52 Year
  Sex: Male

DRUGS (6)
  1. CHAMPIX [Suspect]
     Indication: NICOTINE DEPENDENCE
     Dosage: 2 MG, DAILY
     Route: 048
     Dates: start: 20120826, end: 20120929
  2. CEREKINON [Concomitant]
     Dosage: UNK
  3. URINORM [Concomitant]
     Indication: HYPERURICAEMIA
     Dosage: UNK
  4. CLEAMINE [Concomitant]
     Indication: MIGRAINE
     Dosage: UNK
  5. IMIGRAN [Concomitant]
     Indication: MIGRAINE
     Dosage: UNK
  6. EPENARD [Concomitant]
     Dosage: UNK

REACTIONS (2)
  - Major depression [Unknown]
  - Abdominal pain [Unknown]
